FAERS Safety Report 7893660-4 (Version None)
Quarter: 2011Q4

REPORT INFORMATION
  Report Type: 
  Country: None (occurrence: None)
  Receive Date: 20111104
  Receipt Date: 20111028
  Transmission Date: 20120403
  Serious: Yes (Other)
  Sender: FDA-Public Use
  Company Number: DE-GLAXOSMITHKLINE-D0073201A

PATIENT
  Age: 39 Year

DRUGS (1)
  1. ROPINIROLE [Suspect]
     Dosage: 12MG PER DAY
     Route: 065

REACTIONS (3)
  - MOVEMENT DISORDER [None]
  - NEURODEGENERATIVE DISORDER [None]
  - MUSCLE SPASMS [None]
